FAERS Safety Report 25690562 (Version 2)
Quarter: 2025Q3

REPORT INFORMATION
  Report Type: Report from Study
  Country: US (occurrence: US)
  Receive Date: 20250818
  Receipt Date: 20250829
  Transmission Date: 20251020
  Serious: No
  Sender: MALLINCKRODT
  Company Number: US-MALLINCKRODT-MNK202505058

PATIENT
  Age: 51 Year
  Sex: Female

DRUGS (2)
  1. CORTICOTROPIN [Suspect]
     Active Substance: CORTICOTROPIN
     Indication: Nephrotic syndrome
     Dosage: 40 UNITS
     Route: 058
     Dates: start: 20250814
  2. CORTICOTROPIN [Suspect]
     Active Substance: CORTICOTROPIN
     Indication: Nephrotic syndrome

REACTIONS (13)
  - Migraine [Unknown]
  - Back pain [Unknown]
  - Dizziness [Unknown]
  - Muscle spasms [Unknown]
  - Hypertension [Unknown]
  - Fatigue [Unknown]
  - Asthenia [Unknown]
  - Vomiting [Unknown]
  - Lethargy [Unknown]
  - Insomnia [Unknown]
  - Irritability [Unknown]
  - Generalised oedema [Unknown]
  - Injection site pruritus [Not Recovered/Not Resolved]

NARRATIVE: CASE EVENT DATE: 20250801
